FAERS Safety Report 12640922 (Version 1)
Quarter: 2016Q3

REPORT INFORMATION
  Report Type: Spontaneous
  Country: IT (occurrence: IT)
  Receive Date: 20160810
  Receipt Date: 20160810
  Transmission Date: 20161109
  Serious: Yes (Hospitalization, Other)
  Sender: FDA-Public Use
  Company Number: IT-GLAXOSMITHKLINE-IT2016GSK114121

PATIENT
  Age: 47 Year
  Sex: Male

DRUGS (3)
  1. BUPROPION. [Suspect]
     Active Substance: BUPROPION
     Indication: DEPRESSION
  2. ARIPIPRAZOLE. [Suspect]
     Active Substance: ARIPIPRAZOLE
     Indication: DEPRESSION
  3. VALPROIC ACID. [Suspect]
     Active Substance: VALPROIC ACID
     Indication: DEPRESSION

REACTIONS (5)
  - Cerebrovascular accident [Recovered/Resolved]
  - Basilar artery occlusion [Recovered/Resolved]
  - Dysarthria [Recovered/Resolved]
  - Hemiplegia [Recovered/Resolved]
  - Depressed level of consciousness [Recovered/Resolved]
